FAERS Safety Report 4335936-3 (Version None)
Quarter: 2004Q2

REPORT INFORMATION
  Report Type: 
  Country: None (occurrence: None)
  Receive Date: 20040406
  Receipt Date: 20040322
  Transmission Date: 20050107
  Serious: Yes (Hospitalization)
  Sender: FDA-Public Use
  Company Number: 2004-06833

PATIENT
  Age: 40 Year
  Sex: Male
  Weight: 80 kg

DRUGS (5)
  1. VIREAD [Suspect]
     Indication: HIV INFECTION
     Dosage: 300 MG QD PO
     Route: 048
     Dates: start: 20030826, end: 20031010
  2. BACTRIM [Suspect]
     Dosage: 400 MG QD PO
     Route: 048
     Dates: start: 20020301, end: 20030929
  3. VIRAMUNE [Suspect]
     Indication: HIV INFECTION
     Dosage: 200 MG QD PO
     Route: 048
     Dates: start: 20030610, end: 20030625
  4. VIRAMUNE [Suspect]
     Indication: HIV INFECTION
     Dosage: 400 MG QD PO
     Route: 048
     Dates: start: 20030626
  5. COMBIVIR [Concomitant]

REACTIONS (6)
  - DRUG INEFFECTIVE [None]
  - EPIDERMOLYSIS BULLOSA [None]
  - HAEMORRHAGE [None]
  - PORPHYRIA [None]
  - PRURITUS [None]
  - VIRAL LOAD INCREASED [None]
